FAERS Safety Report 21558624 (Version 2)
Quarter: 2022Q4

REPORT INFORMATION
  Report Type: Other
  Country: CA (occurrence: None)
  Receive Date: 20221107
  Receipt Date: 20221229
  Transmission Date: 20230113
  Serious: No
  Sender: FDA-Public Use
  Company Number: CA-ROCHE-3211473

PATIENT
  Sex: Female

DRUGS (1)
  1. OCREVUS [Suspect]
     Active Substance: OCRELIZUMAB
     Indication: Relapsing-remitting multiple sclerosis
     Dosage: THEN 600 MG EVERY 6 MONTH
     Route: 042
     Dates: start: 20210531

REACTIONS (6)
  - Fall [Unknown]
  - Face injury [Recovering/Resolving]
  - Tooth fracture [Recovering/Resolving]
  - SARS-CoV-2 test positive [Recovered/Resolved]
  - Bronchitis [Recovered/Resolved]
  - Tooth disorder [Unknown]
